FAERS Safety Report 12345679 (Version 1)
Quarter: 2016Q2

REPORT INFORMATION
  Report Type: Report from Study
  Country: US (occurrence: US)
  Receive Date: 20160509
  Receipt Date: 20160509
  Transmission Date: 20160815
  Serious: Yes (Other)
  Sender: FDA-Public Use
  Company Number: PHEH2016US010878

PATIENT

DRUGS (1)
  1. ZYKADIA [Suspect]
     Active Substance: CERITINIB
     Indication: NON-SMALL CELL LUNG CANCER
     Dosage: 750 MG/KG, QD
     Route: 048

REACTIONS (9)
  - Constipation [Unknown]
  - Malignant neoplasm progression [Not Recovered/Not Resolved]
  - Abdominal pain upper [Recovered/Resolved]
  - Non-small cell lung cancer [Not Recovered/Not Resolved]
  - Metastases to central nervous system [Unknown]
  - Diarrhoea [Not Recovered/Not Resolved]
  - Vomiting [Recovered/Resolved]
  - Fatigue [Not Recovered/Not Resolved]
  - Nausea [Recovering/Resolving]
